FAERS Safety Report 20227123 (Version 1)
Quarter: 2021Q4

REPORT INFORMATION
  Report Type: Spontaneous
  Country: DE (occurrence: DE)
  Receive Date: 20211224
  Receipt Date: 20211224
  Transmission Date: 20220303
  Serious: Yes (Hospitalization)
  Sender: FDA-Public Use
  Company Number: DE-ADRED-07083-02

PATIENT
  Age: 52 Year
  Sex: Male
  Weight: 86 kg

DRUGS (11)
  1. SITAGLIPTIN PHOSPHATE [Suspect]
     Active Substance: SITAGLIPTIN PHOSPHATE
     Dosage: UNK; 50 MG, 1-0-0-0, TABLETS
     Route: 048
  2. PREDNISOLONE [Suspect]
     Active Substance: PREDNISOLONE
     Dosage: UNK; 5 MG, 1-0-0-0, TABLETS
     Route: 048
  3. MYCOPHENOLIC ACID [Suspect]
     Active Substance: MYCOPHENOLIC ACID
     Dosage: UNK; 360 MG, 2-0-2-0, SUSTAINED-RELEASE TABLETS
     Route: 048
  4. CANDESARTAN [Suspect]
     Active Substance: CANDESARTAN
     Dosage: UNK; 16 MG, 0-0-1-0, TABLETS
     Route: 048
  5. TACROLIMUS [Suspect]
     Active Substance: TACROLIMUS
     Dosage: UNK; 0.5 MG, 1-0-1-0, CAPSULES
     Route: 048
  6. SODIUM BICARBONATE [Concomitant]
     Active Substance: SODIUM BICARBONATE
     Dosage: 1 G, 2-1-2-0, SUSTAINED-RELEASE TABLETS
     Route: 048
  7. FLUVASTATIN [Concomitant]
     Active Substance: FLUVASTATIN SODIUM
     Dosage: 40 MG, 0-0-1-0, CAPSULES
     Route: 048
  8. PANTOPRAZOLE [Concomitant]
     Active Substance: PANTOPRAZOLE
     Dosage: 40 MG, 1-0-0-0, SUSTAINED-RELEASE TABLETS
     Route: 048
  9. NITRENDIPINE [Concomitant]
     Active Substance: NITRENDIPINE
     Dosage: UNK; 10 MG, 1-0-1-0, TABLETS
     Route: 048
  10. TAMSULOSIN [Concomitant]
     Active Substance: TAMSULOSIN
     Dosage: UNK; PROLONGED-RELEASE CAPSULE; 0.4 MG, 1-0-0-0, SUSTAINED-RELEASE CAPSULES
     Route: 048
  11. METOPROLOL [Concomitant]
     Active Substance: METOPROLOL
     Dosage: UNK; 95 MG, 0.5-0-1-0, SUSTAINED-RELEASE TABLETS
     Route: 048

REACTIONS (3)
  - Diarrhoea [Unknown]
  - Pyrexia [Unknown]
  - Dysuria [Unknown]
